FAERS Safety Report 9963972 (Version 1)
Quarter: 2014Q1

REPORT INFORMATION
  Report Type: Spontaneous
  Country: US (occurrence: US)
  Receive Date: 20140305
  Receipt Date: 20140305
  Transmission Date: 20141002
  Serious: No
  Sender: FDA-Public Use
  Company Number: US-MYLANLABS-2014S1002994

PATIENT
  Sex: Male

DRUGS (1)
  1. DOXYCYCLINE HYCLATE DELAYED-RELEASE TABLETS USP [Suspect]
     Indication: RASH
     Route: 048
     Dates: start: 201301, end: 201301

REACTIONS (4)
  - Drug ineffective [Recovered/Resolved]
  - Rash [Recovered/Resolved]
  - Abdominal pain upper [Recovered/Resolved]
  - Nausea [Recovered/Resolved]
